FAERS Safety Report 9468325 (Version 7)
Quarter: 2015Q3

REPORT INFORMATION
  Report Type: Spontaneous
  Country: US (occurrence: US)
  Receive Date: 20130821
  Receipt Date: 20150824
  Transmission Date: 20151125
  Serious: Yes (Death, Life-Threatening, Hospitalization, Other)
  Sender: FDA-Public Use
  Company Number: US-009507513-1308USA008964

PATIENT
  Sex: Female
  Weight: 56.69 kg

DRUGS (2)
  1. JANUVIA [Suspect]
     Active Substance: SITAGLIPTIN PHOSPHATE
     Indication: TYPE 2 DIABETES MELLITUS
     Dosage: 100 MG, QD
     Route: 048
     Dates: start: 20081209
  2. BYETTA [Suspect]
     Active Substance: EXENATIDE
     Dosage: 5 MICROGRAM, BID
     Dates: start: 20050609, end: 20070429

REACTIONS (31)
  - Breast cancer metastatic [Fatal]
  - Jaundice cholestatic [Unknown]
  - Hypothyroidism [Unknown]
  - Radiotherapy to breast [Unknown]
  - Pathological fracture [Unknown]
  - Atelectasis [Unknown]
  - Bile duct cancer [Unknown]
  - Paracentesis [Unknown]
  - Pulmonary mass [Unknown]
  - Metastases to spine [Unknown]
  - Urinary tract infection [Unknown]
  - Portal hypertension [Unknown]
  - Gastrooesophageal reflux disease [Unknown]
  - Vertebroplasty [Unknown]
  - Appendicectomy [Unknown]
  - Pancreatic carcinoma [Fatal]
  - Bone cancer metastatic [Unknown]
  - Surgery [Unknown]
  - Ascites [Unknown]
  - Osteopenia [Unknown]
  - Pneumothorax [Unknown]
  - Hysterectomy [Unknown]
  - Stent placement [Unknown]
  - Decreased appetite [Unknown]
  - Radiotherapy to bone [Unknown]
  - Cholecystectomy [Unknown]
  - Haemorrhage [Unknown]
  - Abdominal pain upper [Unknown]
  - Breast conserving surgery [Unknown]
  - Cholelithiasis [Unknown]
  - Blood glucose increased [Unknown]

NARRATIVE: CASE EVENT DATE: 2009
